FAERS Safety Report 17913961 (Version 2)
Quarter: 2020Q3

REPORT INFORMATION
  Report Type: Spontaneous
  Country: SE (occurrence: SE)
  Receive Date: 20200618
  Receipt Date: 20200713
  Transmission Date: 20201103
  Serious: Yes (Other)
  Sender: FDA-Public Use
  Company Number: SE-PFIZER INC-2020235819

PATIENT
  Age: 77 Year
  Sex: Female

DRUGS (2)
  1. FLUCONAZOLE. [Suspect]
     Active Substance: FLUCONAZOLE
     Dosage: UNK
     Dates: start: 201912
  2. WARAN [Interacting]
     Active Substance: WARFARIN SODIUM
     Dosage: UNK

REACTIONS (3)
  - Melaena [Unknown]
  - Drug interaction [Unknown]
  - Haemorrhage [Unknown]

NARRATIVE: CASE EVENT DATE: 201912
